FAERS Safety Report 9014281 (Version 3)
Quarter: 2014Q4

REPORT INFORMATION
  Report Type: Report from Study
  Country: MX (occurrence: MX)
  Receive Date: 20130115
  Receipt Date: 20141027
  Transmission Date: 20150529
  Serious: Yes (Death, Hospitalization, Other)
  Sender: FDA-Public Use
  Company Number: PHHY2013MX002985

PATIENT
  Age: 65 Year
  Sex: Female

DRUGS (9)
  1. STALEVO [Suspect]
     Active Substance: CARBIDOPA\ENTACAPONE\LEVODOPA
     Dosage: 0.5 DF, BID (20/150/37.5MG)
     Route: 048
  2. BEDOYECTA [Concomitant]
     Indication: PRODUCT USED FOR UNKNOWN INDICATION
     Dosage: UNK UKN, UNK
     Route: 065
  3. STALEVO [Suspect]
     Active Substance: CARBIDOPA\ENTACAPONE\LEVODOPA
     Indication: OFF LABEL USE
     Dosage: 2 DF, DAILY (200 MG/150 MG/37.5 MG, 1 TABLET IN THE MORNING, HALF AT 13:00 H AND HALF AT 18:00 H)
     Route: 048
  4. INSOGEN PLUS [Concomitant]
     Indication: DIABETES MELLITUS
     Dosage: 1 DF, QD
     Route: 065
     Dates: start: 1987
  5. STALEVO [Suspect]
     Active Substance: CARBIDOPA\ENTACAPONE\LEVODOPA
     Indication: MULTIPLE SYSTEM ATROPHY
     Dosage: 3 DF, DAILY (200 MG/150 MG/37.5 MG)
     Route: 065
  6. BEKUNIS                            /00355801/ [Concomitant]
     Indication: PRODUCT USED FOR UNKNOWN INDICATION
     Dosage: UNK UKN, UNK
     Route: 065
  7. STALEVO [Suspect]
     Active Substance: CARBIDOPA\ENTACAPONE\LEVODOPA
     Indication: PARKINSON^S DISEASE
     Dosage: 5 DF, UNK (200 MG/150 MG/37.5 MG)
     Route: 065
     Dates: start: 2009
  8. ANAPSIQUE [Concomitant]
     Indication: PRODUCT USED FOR UNKNOWN INDICATION
     Dosage: UNK UKN, UNK
     Route: 065
  9. ZESTRIL [Concomitant]
     Active Substance: LISINOPRIL
     Indication: PRODUCT USED FOR UNKNOWN INDICATION
     Dosage: 0.5 UKN, QD
     Route: 065
     Dates: start: 1994

REACTIONS (11)
  - Loss of consciousness [Recovered/Resolved]
  - Feeding disorder [Unknown]
  - Dysphagia [Not Recovered/Not Resolved]
  - Asphyxia [Fatal]
  - Choking [Not Recovered/Not Resolved]
  - Wrong technique in drug usage process [Not Recovered/Not Resolved]
  - Blood pressure decreased [Recovered/Resolved]
  - Productive cough [Fatal]
  - Multiple system atrophy [Fatal]
  - Syncope [Recovered/Resolved]
  - Feeling abnormal [Not Recovered/Not Resolved]
